FAERS Safety Report 12400233 (Version 1)
Quarter: 2016Q2

REPORT INFORMATION
  Report Type: Spontaneous
  Country: US (occurrence: None)
  Receive Date: 20160524
  Receipt Date: 20160524
  Transmission Date: 20160815
  Serious: Yes (Hospitalization)
  Sender: FDA-Public Use
  Company Number: None

PATIENT
  Age: 4 Year
  Sex: Female
  Weight: 17.69 kg

DRUGS (4)
  1. MULTIVITAMIN [Concomitant]
     Active Substance: VITAMINS
  2. OXCARBAZEPINE (TRILEPTAL) [Concomitant]
  3. KEPPRA [Suspect]
     Active Substance: LEVETIRACETAM
     Indication: EPILEPSY
     Dosage: 1 BOTTLE TWICE A DAY TAKEN BY MOUTH
     Route: 048
  4. LORAZEPAM (ATIVAN) [Concomitant]

REACTIONS (2)
  - Psychomotor hyperactivity [None]
  - Aggression [None]

NARRATIVE: CASE EVENT DATE: 20160516
